FAERS Safety Report 17470004 (Version 1)
Quarter: 2020Q1

REPORT INFORMATION
  Report Type: Spontaneous
  Country: IT (occurrence: IT)
  Receive Date: 20200227
  Receipt Date: 20200227
  Transmission Date: 20200409
  Serious: Yes (Other)
  Sender: FDA-Public Use
  Company Number: IT-BAUSCH-BL-2020-005044

PATIENT
  Age: 63 Year
  Sex: Male
  Weight: 77 kg

DRUGS (6)
  1. ATORVASTATIN [Suspect]
     Active Substance: ATORVASTATIN
     Indication: PRODUCT USED FOR UNKNOWN INDICATION
     Dosage: 20 MG, QD
     Route: 065
  2. INSULIN LISPRO [Suspect]
     Active Substance: INSULIN LISPRO
     Indication: PRODUCT USED FOR UNKNOWN INDICATION
     Dosage: 25 IU, TID (EACH MEAL) (75 IU IN ONE DAY)
     Route: 065
  3. INSULIN LISPRO [Suspect]
     Active Substance: INSULIN LISPRO
     Dosage: 16 IU, TID (EACH MEAL), 48 IU IN ONE DAY
     Route: 065
  4. TRESIBA [Suspect]
     Active Substance: INSULIN DEGLUDEC
     Dosage: 20 IU, QD (MORNING), U100
     Route: 065
     Dates: start: 201807, end: 201811
  5. METFORMIN [Suspect]
     Active Substance: METFORMIN HYDROCHLORIDE
     Indication: PRODUCT USED FOR UNKNOWN INDICATION
     Dosage: 850 MG, TID (2550 MG IN ONE DAY)
     Route: 065
  6. TRESIBA [Suspect]
     Active Substance: INSULIN DEGLUDEC
     Indication: PRODUCT USED FOR UNKNOWN INDICATION
     Dosage: 25 IU, QD (MORNING), U100
     Route: 065
     Dates: start: 201805, end: 201807

REACTIONS (3)
  - Product dose omission [Unknown]
  - Hyperglycaemia [Unknown]
  - Blood glucose increased [Unknown]

NARRATIVE: CASE EVENT DATE: 201811
